FAERS Safety Report 15469501 (Version 2)
Quarter: 2018Q4

REPORT INFORMATION
  Report Type: Spontaneous
  Country: US (occurrence: US)
  Receive Date: 20181005
  Receipt Date: 20181109
  Transmission Date: 20190205
  Serious: No
  Sender: FDA-Public Use
  Company Number: US-GILEAD-2018-0366645

PATIENT
  Age: 64 Year
  Sex: Male
  Weight: 88.9 kg

DRUGS (2)
  1. EPCLUSA [Suspect]
     Active Substance: SOFOSBUVIR\VELPATASVIR
     Indication: PRODUCT USED FOR UNKNOWN INDICATION
     Dosage: 1 DF, QD
     Route: 065
  2. MULTIPLE VITAMINS [Concomitant]
     Active Substance: VITAMINS

REACTIONS (2)
  - Nail disorder [Not Recovered/Not Resolved]
  - Skin papilloma [Recovering/Resolving]
